FAERS Safety Report 8975900 (Version 1)
Quarter: 2012Q4

REPORT INFORMATION
  Report Type: 
  Country: US (occurrence: US)
  Receive Date: 20121219
  Receipt Date: 20121219
  Transmission Date: 20130627
  Serious: Yes (Death)
  Sender: FDA-Public Use
  Company Number: US-GLAXOSMITHKLINE-A1005809A

PATIENT
  Age: 78 Year
  Sex: Female

DRUGS (9)
  1. VOTRIENT [Suspect]
     Indication: PRODUCT USED FOR UNKNOWN INDICATION
     Dosage: 800MG Per day
     Route: 048
  2. PRILOSEC [Concomitant]
  3. ATENOLOL [Concomitant]
  4. PRAVASTATIN [Concomitant]
  5. AMLODIPINE [Concomitant]
  6. HYDROCHLOROTHIAZIDE [Concomitant]
  7. MULTIVITAMIN [Concomitant]
  8. ASPIRIN [Concomitant]
  9. CALCIUM + VITAMIN D [Concomitant]

REACTIONS (1)
  - Death [Fatal]
